FAERS Safety Report 12238236 (Version 1)
Quarter: 2016Q2

REPORT INFORMATION
  Report Type: Spontaneous
  Country: US (occurrence: None)
  Receive Date: 20160404
  Receipt Date: 20160404
  Transmission Date: 20160815
  Serious: Yes (Life-Threatening, Hospitalization)
  Sender: FDA-Public Use
  Company Number: None

PATIENT
  Age: 40 Year
  Sex: Female

DRUGS (1)
  1. BELBUCA [Suspect]
     Active Substance: BUPRENORPHINE HYDROCHLORIDE
     Route: 048
     Dates: start: 20160304, end: 20160309

REACTIONS (5)
  - Hypertension [None]
  - Sleep terror [None]
  - Memory impairment [None]
  - Hallucination [None]
  - Respiratory arrest [None]

NARRATIVE: CASE EVENT DATE: 20160308
